FAERS Safety Report 23626329 (Version 1)
Quarter: 2024Q1

REPORT INFORMATION
  Report Type: Spontaneous
  Country: US (occurrence: US)
  Receive Date: 20240313
  Receipt Date: 20240313
  Transmission Date: 20240409
  Serious: Yes (Life-Threatening, Hospitalization)
  Sender: FDA-Public Use
  Company Number: US-MYLANLABS-2024M1021443

PATIENT
  Age: 46 Year
  Sex: Female

DRUGS (5)
  1. EPINEPHRINE [Suspect]
     Active Substance: EPINEPHRINE
     Indication: Local anaesthesia
     Dosage: 35 MILLIGRAM; 3L OF A SOLUTION CONTAINING 35MG OF EPINEPHRINE PER LITRE OF SODIUM CHLORIDE
     Route: 065
  2. NITROGLYCERIN [Suspect]
     Active Substance: NITROGLYCERIN
     Indication: Procedural hypertension
     Dosage: DRIP
     Route: 065
  3. NOREPINEPHRINE [Suspect]
     Active Substance: NOREPINEPHRINE\NOREPINEPHRINE BITARTRATE
     Indication: Cardiogenic shock
     Dosage: UNK; DRIP
     Route: 065
  4. DOBUTAMINE [Suspect]
     Active Substance: DOBUTAMINE HYDROCHLORIDE
     Indication: Cardiogenic shock
     Dosage: UNK; DRIP
     Route: 065
  5. SALINE [Concomitant]
     Active Substance: SODIUM CHLORIDE
     Indication: Vehicle solution use
     Dosage: 3 LITER; 3L OF A SOLUTION CONTAINING 35MG OF EPINEPHRINE PER LITRE OF SODIUM CHLORIDE
     Route: 065

REACTIONS (7)
  - Cardiogenic shock [Recovering/Resolving]
  - Stress cardiomyopathy [Recovering/Resolving]
  - Pulmonary oedema [Unknown]
  - Incorrect dose administered [Unknown]
  - Accidental overdose [Unknown]
  - Procedural hypertension [Unknown]
  - Drug ineffective [Unknown]
